FAERS Safety Report 8865887 (Version 1)
Quarter: 2012Q4

REPORT INFORMATION
  Report Type: 
  Country: US (occurrence: US)
  Receive Date: 20121025
  Receipt Date: 20121025
  Transmission Date: 20130627
  Serious: No
  Sender: FDA-Public Use
  Company Number: US-ABBOTT-12P-163-0926535-00

PATIENT
  Age: 45 Year
  Sex: Female
  Weight: 70.37 kg

DRUGS (9)
  1. LUPRON DEPOT 3.75 MG [Suspect]
     Indication: PREMENSTRUAL SYNDROME
     Dosage: One dose taken only.
     Route: 050
     Dates: start: 20120406
  2. GENERIC PROZAC [Concomitant]
     Indication: BIPOLAR DISORDER
     Route: 048
  3. VIBRID [Concomitant]
     Indication: PRODUCT USED FOR UNKNOWN INDICATION
     Route: 048
  4. GENERIC WELLBUTRIN [Concomitant]
     Indication: PRODUCT USED FOR UNKNOWN INDICATION
  5. LORAZEPAM [Concomitant]
     Indication: PRODUCT USED FOR UNKNOWN INDICATION
     Route: 048
  6. CLONAZEPAM [Concomitant]
     Indication: PRODUCT USED FOR UNKNOWN INDICATION
     Route: 048
  7. GENERIC TEGRETOL [Concomitant]
     Indication: PRODUCT USED FOR UNKNOWN INDICATION
  8. MORPHINE SULFATE [Concomitant]
     Indication: SPINAL FUSION SURGERY
     Dosage: Small amounts
  9. ACETAMINOPHEN W/HYDROCODONE BITARTRATE [Concomitant]
     Indication: BACK PAIN
     Dosage: 325mg/10mg
     Route: 048

REACTIONS (6)
  - Off label use [Not Recovered/Not Resolved]
  - Premenstrual dysphoric disorder [Not Recovered/Not Resolved]
  - Premenstrual syndrome [Not Recovered/Not Resolved]
  - Headache [Not Recovered/Not Resolved]
  - Feeling abnormal [Not Recovered/Not Resolved]
  - Insomnia [Not Recovered/Not Resolved]
